FAERS Safety Report 13003235 (Version 1)
Quarter: 2016Q4

REPORT INFORMATION
  Report Type: Spontaneous
  Country: US (occurrence: US)
  Receive Date: 20161206
  Receipt Date: 20161206
  Transmission Date: 20170207
  Serious: Yes (Hospitalization)
  Sender: FDA-Public Use
  Company Number: US-JNJFOC-20161116183

PATIENT
  Age: 78 Year
  Sex: Female

DRUGS (15)
  1. XARELTO [Suspect]
     Active Substance: RIVAROXABAN
     Indication: ATRIAL FIBRILLATION
     Route: 048
     Dates: start: 20141105, end: 20141108
  2. XARELTO [Suspect]
     Active Substance: RIVAROXABAN
     Indication: THROMBOSIS PROPHYLAXIS
     Route: 048
     Dates: start: 20141105, end: 20141108
  3. K-DUR [Concomitant]
     Active Substance: POTASSIUM CHLORIDE
  4. OXYBUTYNIN [Concomitant]
     Active Substance: OXYBUTYNIN
  5. FLUTICASONE PROPIONATE. [Concomitant]
     Active Substance: FLUTICASONE PROPIONATE
  6. IPRATROPIUM [Concomitant]
     Active Substance: IPRATROPIUM
  7. NEXIUM [Concomitant]
     Active Substance: ESOMEPRAZOLE MAGNESIUM
  8. ASA [Concomitant]
     Active Substance: ASPIRIN
  9. COREG [Concomitant]
     Active Substance: CARVEDILOL
  10. NIFEDICAL XL [Concomitant]
     Active Substance: NIFEDIPINE
  11. FUROSEMIDE. [Concomitant]
     Active Substance: FUROSEMIDE
  12. XARELTO [Suspect]
     Active Substance: RIVAROXABAN
     Indication: CEREBROVASCULAR ACCIDENT PROPHYLAXIS
     Route: 048
     Dates: start: 20141105, end: 20141108
  13. NORCO [Concomitant]
     Active Substance: ACETAMINOPHEN\HYDROCODONE BITARTRATE
  14. AMIODARONE [Concomitant]
     Active Substance: AMIODARONE
  15. TEMAZEPAM. [Concomitant]
     Active Substance: TEMAZEPAM

REACTIONS (3)
  - Rectal haemorrhage [Recovering/Resolving]
  - Acute kidney injury [Recovering/Resolving]
  - Gastrointestinal haemorrhage [Recovering/Resolving]

NARRATIVE: CASE EVENT DATE: 201411
